FAERS Safety Report 6073234-0 (Version None)
Quarter: 2009Q1

REPORT INFORMATION
  Report Type: 
  Country: None (occurrence: None)
  Receive Date: 20090211
  Receipt Date: 20081119
  Transmission Date: 20090719
  Serious: No
  Sender: FDA-Public Use
  Company Number: A0757065A

PATIENT
  Sex: Female

DRUGS (1)
  1. ALTABAX [Suspect]
     Dosage: 1APP SINGLE DOSE
     Route: 045
     Dates: start: 20081116

REACTIONS (2)
  - APPLICATION SITE IRRITATION [None]
  - INCORRECT ROUTE OF DRUG ADMINISTRATION [None]
